FAERS Safety Report 6578271-5 (Version None)
Quarter: 2010Q1

REPORT INFORMATION
  Report Type: 
  Country: None (occurrence: None)
  Receive Date: 20100211
  Receipt Date: 20100205
  Transmission Date: 20100710
  Serious: Yes (Other)
  Sender: FDA-Public Use
  Company Number: B0614599A

PATIENT
  Sex: Female

DRUGS (4)
  1. REQUIP [Suspect]
     Indication: PARKINSON'S DISEASE
     Dosage: .5MG FOUR TIMES PER DAY
     Route: 048
     Dates: start: 20091210, end: 20091212
  2. ALPRAZOLAM [Concomitant]
     Indication: DRUG USE FOR UNKNOWN INDICATION
     Dosage: .25MG THREE TIMES PER DAY
     Route: 048
  3. SINEMET [Concomitant]
     Indication: DRUG USE FOR UNKNOWN INDICATION
     Route: 048
  4. ELAVIL [Concomitant]
     Indication: DRUG USE FOR UNKNOWN INDICATION
     Dosage: 25MG PER DAY
     Route: 048

REACTIONS (8)
  - ASTHENIA [None]
  - DRUG DISPENSING ERROR [None]
  - FATIGUE [None]
  - MEDICATION ERROR [None]
  - PARKINSONISM [None]
  - RESPIRATORY DISORDER [None]
  - TREMOR [None]
  - UNDERDOSE [None]
